FAERS Safety Report 4837205-1 (Version None)
Quarter: 2005Q4

REPORT INFORMATION
  Report Type: 
  Country: None (occurrence: None)
  Receive Date: 20051122
  Receipt Date: 20051110
  Transmission Date: 20060501
  Serious: Yes (Other)
  Sender: FDA-Public Use
  Company Number: DSA_70552_2005

PATIENT
  Age: 65 Year
  Sex: Female

DRUGS (5)
  1. DARVOCET-N 100 [Suspect]
     Indication: INTERVERTEBRAL DISC PROTRUSION
     Dosage: 1 TAB QID PO
     Route: 048
     Dates: start: 19981101
  2. DARVOCET-N 100 [Suspect]
     Indication: PAIN
     Dosage: 1 TAB QID PO
     Route: 048
     Dates: start: 19981101
  3. DARVOCET-N 100 [Suspect]
     Indication: INTERVERTEBRAL DISC PROTRUSION
     Dosage: 1 TAB TID PO
     Route: 048
  4. DARVOCET-N 100 [Suspect]
     Indication: PAIN
     Dosage: 1 TAB TID PO
     Route: 048
  5. VALIUM [Concomitant]

REACTIONS (14)
  - CONSTIPATION [None]
  - DYSPEPSIA [None]
  - FEELING ABNORMAL [None]
  - FIBROMYALGIA [None]
  - HEPATITIS [None]
  - HYPERSENSITIVITY [None]
  - IMPATIENCE [None]
  - LUNG NEOPLASM [None]
  - RENAL PAIN [None]
  - SCAR [None]
  - SELF ESTEEM DECREASED [None]
  - VIRAL INFECTION [None]
  - VISION BLURRED [None]
  - VISUAL DISTURBANCE [None]
